FAERS Safety Report 7314746-9 (Version None)
Quarter: 2011Q1

REPORT INFORMATION
  Report Type: 
  Country: None (occurrence: None)
  Receive Date: 20110225
  Receipt Date: 20101228
  Transmission Date: 20110831
  Serious: No
  Sender: FDA-Public Use
  Company Number: US-MYLANLABS-2010S1021788

PATIENT
  Age: 42 Year
  Sex: Female

DRUGS (4)
  1. AMNESTEEM [Suspect]
  2. ISOTRETINOIN [Suspect]
     Indication: ACNE
     Route: 048
  3. AMNESTEEM [Suspect]
     Indication: ACNE
     Route: 048
     Dates: start: 20100507, end: 20101112
  4. ISOTRETINOIN [Suspect]
     Route: 048

REACTIONS (2)
  - GAIT DISTURBANCE [None]
  - TENDON PAIN [None]
